FAERS Safety Report 26086465 (Version 1)
Quarter: 2025Q4

REPORT INFORMATION
  Report Type: Spontaneous
  Country: US (occurrence: US)
  Receive Date: 20251125
  Receipt Date: 20251125
  Transmission Date: 20260118
  Serious: Yes (Hospitalization, Other)
  Sender: MANKIND PHARMA
  Company Number: US-MANKIND PHARMA LIMITED-2025-US-00181

PATIENT
  Age: 48 Year
  Sex: Male

DRUGS (5)
  1. SUCCINYLCHOLINE CHLORIDE [Suspect]
     Active Substance: SUCCINYLCHOLINE CHLORIDE
     Indication: Induction of anaesthesia
     Route: 042
  2. PROPOFOL [Concomitant]
     Active Substance: PROPOFOL
     Indication: Anaesthesia
     Route: 042
  3. PROPOFOL [Concomitant]
     Active Substance: PROPOFOL
     Dosage: UNK (ADDITIONAL)
     Route: 042
  4. PROPOFOL [Concomitant]
     Active Substance: PROPOFOL
     Dosage: UNK (TOTAL ANESTHESIA)
     Route: 042
  5. REMIFENTANIL [Concomitant]
     Active Substance: REMIFENTANIL
     Indication: Anaesthesia
     Route: 042

REACTIONS (4)
  - Pigment nephropathy [Recovered/Resolved]
  - Thrombocytopenia [Recovered/Resolved]
  - Rhabdomyolysis [Recovered/Resolved]
  - Muscle spasms [Recovered/Resolved]
